FAERS Safety Report 16717847 (Version 1)
Quarter: 2019Q3

REPORT INFORMATION
  Report Type: Spontaneous
  Country: US (occurrence: US)
  Receive Date: 20190819
  Receipt Date: 20190819
  Transmission Date: 20191005
  Serious: Yes (Other)
  Sender: FDA-Public Use
  Company Number: US-ALLERGAN-1933195US

PATIENT
  Sex: Female

DRUGS (1)
  1. CELEXA [Suspect]
     Active Substance: CITALOPRAM HYDROBROMIDE
     Indication: DEPRESSION

REACTIONS (7)
  - Osteonecrosis [Unknown]
  - Inflammation [Unknown]
  - Gait disturbance [Unknown]
  - Impaired healing [Unknown]
  - Depression [Unknown]
  - Rash [Unknown]
  - Weight increased [Unknown]
